FAERS Safety Report 6208658-1 (Version None)
Quarter: 2009Q2

REPORT INFORMATION
  Report Type: 
  Country: None (occurrence: None)
  Receive Date: 20090529
  Receipt Date: 20090521
  Transmission Date: 20091009
  Serious: Yes (Other)
  Sender: FDA-Public Use
  Company Number: SE-JNJFOC-20090505471

PATIENT
  Sex: Female

DRUGS (2)
  1. LEUSTATIN [Suspect]
     Route: 065
  2. LEUSTATIN [Suspect]
     Indication: HAIRY CELL LEUKAEMIA
     Dosage: 5 DAY TREATMENT
     Route: 065

REACTIONS (3)
  - GAIT DISTURBANCE [None]
  - MUSCLE RUPTURE [None]
  - TENDON RUPTURE [None]
